FAERS Safety Report 8057879-4 (Version None)
Quarter: 2012Q1

REPORT INFORMATION
  Report Type: 
  Country: None (occurrence: None)
  Receive Date: 20120120
  Receipt Date: 20080815
  Transmission Date: 20120608
  Serious: No
  Sender: FDA-Public Use
  Company Number: 2008BI020975

PATIENT
  Age: 45 Year
  Sex: Female

DRUGS (1)
  1. TYSABRI [Suspect]
     Indication: MULTIPLE SCLEROSIS
     Route: 042
     Dates: start: 20080808

REACTIONS (7)
  - FEELING COLD [None]
  - SINUSITIS [None]
  - DIARRHOEA [None]
  - CRYING [None]
  - DIZZINESS [None]
  - HYPOTENSION [None]
  - PAIN [None]
